FAERS Safety Report 6241910-2 (Version None)
Quarter: 2009Q2

REPORT INFORMATION
  Report Type: 
  Country: None (occurrence: None)
  Receive Date: 20090622
  Receipt Date: 20090609
  Transmission Date: 20091009
  Serious: Yes (Hospitalization, Other)
  Sender: FDA-Public Use
  Company Number: 2009-01933

PATIENT
  Age: 66 Year
  Sex: Female
  Weight: 90 kg

DRUGS (3)
  1. VELCADE [Suspect]
     Indication: ACUTE MYELOID LEUKAEMIA
     Dosage: 1.3  MG/M2, INTRAVENOUS
     Route: 042
     Dates: start: 20090430, end: 20090507
  2. DAUNORUBICIN HCL [Suspect]
     Indication: ACUTE MYELOID LEUKAEMIA
     Dosage: 60 MG/M2, INTRAVENOUS
     Route: 042
     Dates: start: 20090430, end: 20090502
  3. CYTARABINE [Suspect]
     Indication: ACUTE MYELOID LEUKAEMIA
     Dosage: 100 MG/M2, INTRAVENOUS
     Route: 042
     Dates: start: 20090430, end: 20090506

REACTIONS (20)
  - ASCITES [None]
  - ASTHENIA [None]
  - ATRIAL FIBRILLATION [None]
  - CARDIAC FAILURE CONGESTIVE [None]
  - CHEST DISCOMFORT [None]
  - CONFUSIONAL STATE [None]
  - DEHYDRATION [None]
  - DELUSION [None]
  - DYSSTASIA [None]
  - ELECTROCARDIOGRAM ST-T CHANGE [None]
  - ELECTROLYTE IMBALANCE [None]
  - ENTERITIS [None]
  - HALLUCINATION [None]
  - HYPOKALAEMIA [None]
  - LEFT VENTRICULAR DYSFUNCTION [None]
  - MENTAL STATUS CHANGES [None]
  - PERIPHERAL MOTOR NEUROPATHY [None]
  - PERIPHERAL SENSORY NEUROPATHY [None]
  - SEPSIS [None]
  - TACHYCARDIA [None]
